FAERS Safety Report 6369358-0 (Version None)
Quarter: 2009Q3

REPORT INFORMATION
  Report Type: 
  Country: None (occurrence: None)
  Receive Date: 20090917
  Receipt Date: 20090908
  Transmission Date: 20100115
  Serious: Yes (Other)
  Sender: FDA-Public Use
  Company Number: 09US002541

PATIENT
  Age: 29 Year
  Sex: Female
  Weight: 61.2 kg

DRUGS (11)
  1. DIPHENHYDRAMINE HCL [Suspect]
     Indication: SLEEP DISORDER
     Dosage: 50 MG, QD, ORAL
     Route: 048
     Dates: start: 20090711, end: 20090713
  2. NEXIUM [Concomitant]
  3. CELEXA [Concomitant]
  4. KLONOPIN [Concomitant]
  5. MULTIVITAMIN [Concomitant]
  6. VITAMIN B12 (HYDROXOCOBALAMIN) [Concomitant]
  7. IRON (IRON) [Concomitant]
  8. FOLIC ACID [Concomitant]
  9. DICLOFENAC SODIUM [Concomitant]
  10. AUGMENTIN (AMOXICILLIN, CLAVULANIC ACID) [Concomitant]
  11. HYDROCODONE W/PARACETAMOL (HYDROCODONE, PARACETAMOL) [Concomitant]

REACTIONS (12)
  - CONTUSION [None]
  - ERYTHEMA [None]
  - FALL [None]
  - GAIT DISTURBANCE [None]
  - HALLUCINATION [None]
  - HALLUCINATION, AUDITORY [None]
  - INITIAL INSOMNIA [None]
  - JOINT SPRAIN [None]
  - LIGAMENT RUPTURE [None]
  - PAIN [None]
  - PNEUMONIA [None]
  - TOOTH ABSCESS [None]
